FAERS Safety Report 6611620-8 (Version None)
Quarter: 2010Q1

REPORT INFORMATION
  Report Type: 
  Country: None (occurrence: None)
  Receive Date: 20100303
  Receipt Date: 20100222
  Transmission Date: 20100710
  Serious: Yes (Hospitalization)
  Sender: FDA-Public Use
  Company Number: US-ASTRAZENECA-2010SE07557

PATIENT
  Sex: Female
  Weight: 39.9 kg

DRUGS (3)
  1. SEROQUEL [Suspect]
     Dosage: BID
     Route: 048
     Dates: start: 20090201
  2. GEMFIBROZIL [Concomitant]
     Indication: BLOOD CHOLESTEROL INCREASED
     Dosage: DAILY
     Route: 048
     Dates: start: 20100219
  3. ASPIRIN [Concomitant]
     Route: 048

REACTIONS (6)
  - BLOOD GLUCOSE ABNORMAL [None]
  - DIABETES MELLITUS [None]
  - DIABETIC COMA [None]
  - LOSS OF CONSCIOUSNESS [None]
  - OEDEMA PERIPHERAL [None]
  - PNEUMONIA [None]
